FAERS Safety Report 5176610-3 (Version None)
Quarter: 2006Q4

REPORT INFORMATION
  Report Type: 
  Country: None (occurrence: None)
  Receive Date: 20061207
  Receipt Date: 20061128
  Transmission Date: 20070319
  Serious: Yes (Hospitalization, Other)
  Sender: FDA-Public Use
  Company Number: 2006109708

PATIENT
  Age: 28 Year
  Sex: Female

DRUGS (3)
  1. DEPO-PROVERA [Suspect]
     Indication: CONTRACEPTION
     Dosage: 150 MG (150 MG, MOST RECENT INJECTION); INTRAMUSCULAR
     Route: 030
     Dates: start: 20060823, end: 20060823
  2. TEMAZEPAM [Concomitant]
  3. OXAZEPAM [Concomitant]

REACTIONS (8)
  - BACK PAIN [None]
  - DIZZINESS [None]
  - DRUG INEFFECTIVE [None]
  - INJECTION SITE ABSCESS [None]
  - INJECTION SITE HAEMATOMA [None]
  - MALAISE [None]
  - STAPHYLOCOCCAL ABSCESS [None]
  - STAPHYLOCOCCAL SKIN INFECTION [None]
